FAERS Safety Report 22083797 (Version 1)
Quarter: 2023Q1

REPORT INFORMATION
  Report Type: Spontaneous
  Country: JP (occurrence: JP)
  Receive Date: 20230310
  Receipt Date: 20230310
  Transmission Date: 20230417
  Serious: Yes (Hospitalization)
  Sender: FDA-Public Use
  Company Number: JP-MYE-2023M1025034AA

PATIENT
  Age: 86 Year
  Sex: Male

DRUGS (2)
  1. QUETIAPINE [Interacting]
     Active Substance: QUETIAPINE
     Indication: Hallucination, auditory
     Dosage: 125 MILLIGRAM, QD
     Route: 048
  2. AMENAMEVIR [Interacting]
     Active Substance: AMENAMEVIR
     Indication: Herpes zoster
     Dosage: 400 MILLIGRAM, QD
     Route: 065

REACTIONS (3)
  - Drug level decreased [Unknown]
  - Hallucination [Unknown]
  - Drug interaction [Unknown]
